FAERS Safety Report 18223073 (Version 1)
Quarter: 2020Q3

REPORT INFORMATION
  Report Type: Spontaneous
  Country: US (occurrence: US)
  Receive Date: 20200902
  Receipt Date: 20200902
  Transmission Date: 20201103
  Serious: Yes (Other)
  Sender: FDA-Public Use
  Company Number: US-MALLINCKRODT-T202004300

PATIENT
  Sex: Male
  Weight: 81 kg

DRUGS (3)
  1. H.P. ACTHAR [Suspect]
     Active Substance: CORTICOTROPIN
     Indication: DERMATOSIS
     Dosage: 80 UNITS (1ML) TWO TIMES A WEEK
     Route: 058
     Dates: start: 201809
  2. H.P. ACTHAR [Suspect]
     Active Substance: CORTICOTROPIN
     Indication: POLYMYOSITIS
  3. H.P. ACTHAR [Suspect]
     Active Substance: CORTICOTROPIN
     Indication: MYOPATHY

REACTIONS (2)
  - Cataract [Unknown]
  - Cataract operation [Unknown]
